FAERS Safety Report 7147995-3 (Version None)
Quarter: 2010Q4

REPORT INFORMATION
  Report Type: 
  Country: None (occurrence: None)
  Receive Date: 20101206
  Receipt Date: 20101206
  Transmission Date: 20110411
  Serious: Yes (Hospitalization, Other)
  Sender: FDA-Public Use
  Company Number: None

PATIENT
  Age: 29 Year
  Sex: Male
  Weight: 95.2554 kg

DRUGS (1)
  1. CRESTOR [Suspect]
     Indication: BLOOD CHOLESTEROL

REACTIONS (22)
  - ABDOMINAL PAIN [None]
  - AGEUSIA [None]
  - ARTHRALGIA [None]
  - BACK PAIN [None]
  - BOWEL MOVEMENT IRREGULARITY [None]
  - CONSTIPATION [None]
  - DECREASED APPETITE [None]
  - DISCOMFORT [None]
  - DRY SKIN [None]
  - DYSSTASIA [None]
  - GROIN PAIN [None]
  - HEADACHE [None]
  - HYPERHIDROSIS [None]
  - INSOMNIA [None]
  - IRRITABILITY [None]
  - MICTURITION DISORDER [None]
  - MUSCULOSKELETAL PAIN [None]
  - MYALGIA [None]
  - PAIN IN EXTREMITY [None]
  - PRURITUS [None]
  - SOCIAL PROBLEM [None]
  - WEIGHT DECREASED [None]
